FAERS Safety Report 5709056-7 (Version None)
Quarter: 2008Q2

REPORT INFORMATION
  Report Type: 
  Country: None (occurrence: None)
  Receive Date: 20080416
  Receipt Date: 20080416
  Transmission Date: 20081010
  Serious: Yes (Hospitalization)
  Sender: FDA-Public Use
  Company Number: None

PATIENT
  Sex: Female
  Weight: 107.0489 kg

DRUGS (2)
  1. ALIMTA [Suspect]
     Indication: OVARIAN CANCER METASTATIC
     Dosage: 500 MG/M2 D1, 8 Q 21 D IV
     Route: 042
     Dates: start: 20070914
  2. ERLOTINIB [Suspect]
     Indication: OVARIAN CANCER METASTATIC
     Dosage: 250MG D2-16 Q 21 D PO
     Route: 048
     Dates: start: 20070915

REACTIONS (13)
  - ANAEMIA [None]
  - BLOOD CULTURE POSITIVE [None]
  - DIARRHOEA [None]
  - DYSPNOEA [None]
  - FEBRILE NEUTROPENIA [None]
  - LABORATORY TEST INTERFERENCE [None]
  - MENTAL STATUS CHANGES [None]
  - PLATELET COUNT DECREASED [None]
  - PLEURAL EFFUSION [None]
  - PULMONARY EMBOLISM [None]
  - RENAL FAILURE [None]
  - STAPHYLOCOCCAL INFECTION [None]
  - TACHYCARDIA [None]
